FAERS Safety Report 9353494 (Version 3)
Quarter: 2013Q4

REPORT INFORMATION
  Report Type: Report from Study
  Country: NL (occurrence: NL)
  Receive Date: 20130618
  Receipt Date: 20131217
  Transmission Date: 20140711
  Serious: Yes (Death)
  Sender: FDA-Public Use
  Company Number: NL-SANOFI-AVENTIS-2013SA059698

PATIENT
  Age: 61 Year
  Sex: Male

DRUGS (21)
  1. AFLIBERCEPT [Suspect]
     Indication: COLORECTAL CANCER METASTATIC
     Route: 042
     Dates: start: 20130516, end: 20130516
  2. AFLIBERCEPT [Suspect]
     Indication: COLORECTAL CANCER METASTATIC
     Route: 042
     Dates: start: 20130530, end: 20130530
  3. 5-FU [Suspect]
     Indication: COLORECTAL CANCER METASTATIC
     Route: 040
     Dates: start: 20130516, end: 20130516
  4. 5-FU [Suspect]
     Indication: COLORECTAL CANCER METASTATIC
     Route: 041
     Dates: start: 20130516, end: 20130516
  5. 5-FU [Suspect]
     Indication: COLORECTAL CANCER METASTATIC
     Route: 041
     Dates: start: 20130530, end: 20130530
  6. 5-FU [Suspect]
     Indication: COLORECTAL CANCER METASTATIC
     Route: 040
     Dates: start: 20130530, end: 20130530
  7. IRINOTECAN [Suspect]
     Indication: COLORECTAL CANCER METASTATIC
     Route: 042
     Dates: start: 20130516, end: 20130516
  8. IRINOTECAN [Suspect]
     Indication: COLORECTAL CANCER METASTATIC
     Route: 042
     Dates: start: 20130530, end: 20130530
  9. LEUCOVORIN [Suspect]
     Indication: COLORECTAL CANCER METASTATIC
     Route: 042
     Dates: start: 20130516, end: 20130516
  10. LEUCOVORIN [Suspect]
     Indication: COLORECTAL CANCER METASTATIC
     Route: 042
     Dates: start: 20130530, end: 20130530
  11. OXAZEPAM [Concomitant]
     Dates: start: 2009
  12. DIURETICS [Concomitant]
     Dates: start: 2009
  13. ROSUVASTATIN [Concomitant]
     Dates: start: 2009
  14. MOVICOLON [Concomitant]
     Dates: start: 20110805
  15. SEROTONIN ANTAGONISTS [Concomitant]
     Indication: PROPHYLAXIS
     Dates: start: 20130503
  16. CALCIUM CHANNEL BLOCKERS [Concomitant]
     Dates: start: 20130214
  17. ANGIOTENSIN II ANTAGONISTS [Concomitant]
     Dates: start: 20130214
  18. PRIMPERAN [Concomitant]
     Indication: PROPHYLAXIS
     Dates: start: 20130503
  19. LOPERAMIDE [Concomitant]
     Dates: start: 20130503
  20. PANTOPRAZOLE [Concomitant]
     Indication: PROPHYLAXIS
     Dates: start: 20100303
  21. ANTIBIOTICS [Concomitant]
     Indication: PROPHYLAXIS
     Dates: start: 20130513

REACTIONS (1)
  - Pulmonary haemorrhage [Fatal]
